FAERS Safety Report 8590934 (Version 3)
Quarter: 2013Q3

REPORT INFORMATION
  Report Type: Spontaneous
  Country: DK (occurrence: DK)
  Receive Date: 20120601
  Receipt Date: 20130812
  Transmission Date: 20140515
  Serious: Yes (Life-Threatening, Hospitalization)
  Sender: FDA-Public Use
  Company Number: DK-GLAXOSMITHKLINE-B0804968A

PATIENT
  Age: 48 Year
  Sex: Male

DRUGS (1)
  1. ZINACEF [Suspect]
     Indication: PRODUCT USED FOR UNKNOWN INDICATION
     Route: 042
     Dates: start: 20100510

REACTIONS (8)
  - Anaphylactic shock [Recovered/Resolved]
  - Blood pressure decreased [Recovered/Resolved]
  - Cardiac disorder [Recovered/Resolved]
  - Oxygen saturation decreased [Recovered/Resolved]
  - Fatigue [Unknown]
  - Drug hypersensitivity [Unknown]
  - Arthralgia [Unknown]
  - Endotracheal intubation [Recovered/Resolved]
